FAERS Safety Report 10098037 (Version 5)
Quarter: 2014Q2

REPORT INFORMATION
  Report Type: Spontaneous
  Country: US (occurrence: None)
  Receive Date: 20140421
  Receipt Date: 20140619
  Transmission Date: 20141212
  Serious: Yes (Hospitalization)
  Sender: FDA-Public Use
  Company Number: AUR-APL-2014-04501

PATIENT
  Age: 58 Year
  Sex: Male
  Weight: 102.4 kg

DRUGS (19)
  1. HYDROCHLOROTHIAZIDE [Suspect]
     Indication: HYPERTENSION
     Dosage: 25 MG, ONCE A DAY, ORAL
     Route: 048
     Dates: start: 20130620
  2. BENICAR [Suspect]
     Indication: HYPERTENSION
     Dosage: 40 MG, ONCE A DAY, ORAL
     Route: 048
     Dates: start: 20140307
  3. NEXIUM (ESOMEPRAZOLE MAGNESIUM) [Concomitant]
  4. ZETIA (EZETIMIBE) [Concomitant]
  5. ACYCLOVIR (ACICLOVIR) (ACICLOVIR) [Concomitant]
  6. FOLIC ACID (FOLIC ACID) [Concomitant]
  7. ATORVASTATIN (ATORVASTATIN) [Concomitant]
  8. IBUPROFEN (IBUPROFEN) [Concomitant]
  9. LOVAZA [Concomitant]
  10. ANDROGEL [Concomitant]
  11. CREON [Concomitant]
  12. VITAMIN D (ERGOCALCIFEROL) [Concomitant]
  13. INSULIN (INSULIN) [Concomitant]
  14. PERCOCET [Concomitant]
  15. TUMS [Concomitant]
  16. ONDANSETRON [Concomitant]
  17. TRAMADOL (TRAMADOL) [Concomitant]
  18. DOXAZOSIN MESILATE [Concomitant]
  19. OMEPRAZOLE (OMEPRAZOLE) [Concomitant]

REACTIONS (5)
  - Electrolyte imbalance [None]
  - Dyspepsia [None]
  - Fall [None]
  - Hypertonic bladder [None]
  - Blood chloride decreased [None]
